FAERS Safety Report 8172963-2 (Version None)
Quarter: 2012Q1

REPORT INFORMATION
  Report Type: 
  Country: None (occurrence: None)
  Receive Date: 20120223
  Receipt Date: 20120206
  Transmission Date: 20120608
  Serious: Yes (Other)
  Sender: FDA-Public Use
  Company Number: JPI-P-019703

PATIENT
  Age: 39 Year
  Sex: Female

DRUGS (2)
  1. XYREM [Suspect]
     Indication: HYPERSOMNIA
     Dosage: 4.5 GM (2.25 GM, 2 IN 1 D), ORAL, (TITRATING DOSE), ORAL, 7.5 GM (3.75 GM, 2 IN 1 D), ORAL
     Route: 048
     Dates: start: 20111115
  2. XYREM [Suspect]
     Indication: HYPERSOMNIA
     Dosage: 4.5 GM (2.25 GM, 2 IN 1 D), ORAL, (TITRATING DOSE), ORAL, 7.5 GM (3.75 GM, 2 IN 1 D), ORAL
     Route: 048
     Dates: start: 20111206, end: 20120208

REACTIONS (2)
  - PROCEDURAL PAIN [None]
  - BREAST ABSCESS [None]
